FAERS Safety Report 10046726 (Version 1)
Quarter: 2014Q1

REPORT INFORMATION
  Report Type: Spontaneous
  Country: US (occurrence: US)
  Receive Date: 20140331
  Receipt Date: 20140331
  Transmission Date: 20141002
  Serious: Yes (Hospitalization, Other)
  Sender: FDA-Public Use
  Company Number: US-AMGEN-USASP2014022173

PATIENT
  Age: 68 Year
  Sex: Female
  Weight: 90.7 kg

DRUGS (15)
  1. ENBREL [Suspect]
     Indication: PRODUCT USED FOR UNKNOWN INDICATION
     Dosage: 50 MG, QWK
     Route: 058
     Dates: start: 20090301, end: 20140304
  2. POTASSIUM [Concomitant]
     Dosage: UNK
  3. ATORVASTATIN [Concomitant]
     Dosage: UNK
  4. VICTOZA [Concomitant]
     Dosage: UNK
  5. PEPCID                             /06376601/ [Concomitant]
     Dosage: UNK
  6. STOOL SOFTENER [Concomitant]
     Dosage: UNK
  7. LEVOTHYROXIN [Concomitant]
     Dosage: UNK
  8. VITAMIN D                          /00107901/ [Concomitant]
     Dosage: UNK
  9. METFORMIN [Concomitant]
     Dosage: UNK
  10. GLIPIZIDE [Concomitant]
     Dosage: UNK
  11. NOVOLOG [Concomitant]
     Dosage: UNK
  12. TRAMADOL [Concomitant]
     Dosage: UNK
  13. CARAFATE [Concomitant]
     Dosage: UNK
  14. PROTONIX [Concomitant]
     Dosage: UNK
  15. LOSARTAN [Concomitant]
     Dosage: UNK

REACTIONS (3)
  - Perforated ulcer [Unknown]
  - Cellulitis [Not Recovered/Not Resolved]
  - Wheelchair user [Not Recovered/Not Resolved]
